FAERS Safety Report 4631639-6 (Version None)
Quarter: 2005Q2

REPORT INFORMATION
  Report Type: 
  Country: None (occurrence: None)
  Receive Date: 20050407
  Receipt Date: 20050328
  Transmission Date: 20051028
  Serious: Yes (Other)
  Sender: FDA-Public Use
  Company Number: 2005051648

PATIENT
  Age: 50 Year
  Sex: Male

DRUGS (4)
  1. CARDENALIN (DOXAZOSIN) [Suspect]
     Indication: HYPERTENSION
     Dosage: 2 MG (2 MG, QD), ORAL
     Route: 048
     Dates: start: 20050301, end: 20050301
  2. ETHANOL (ETHANOL) [Suspect]
     Indication: ILL-DEFINED DISORDER
  3. AMLODIPINE BESILATE (AMLODIPINE BESILATE0 [Concomitant]
  4. ANGIOTENSIN II ANTAGONISTS (ANGIOTENSIN III ANTAGONISTS) [Concomitant]

REACTIONS (3)
  - BLOOD PRESSURE SYSTOLIC DECREASED [None]
  - DRUG INTERACTION [None]
  - SHOCK [None]
